FAERS Safety Report 18912773 (Version 1)
Quarter: 2021Q1

REPORT INFORMATION
  Report Type: Spontaneous
  Country: JP (occurrence: JP)
  Receive Date: 20210219
  Receipt Date: 20210219
  Transmission Date: 20210420
  Serious: Yes (Hospitalization, Other)
  Sender: FDA-Public Use
  Company Number: JP-ALKEM LABORATORIES LIMITED-JP-ALKEM-2020-00664

PATIENT
  Age: 73 Year
  Sex: Male

DRUGS (5)
  1. LINEZOLID. [Suspect]
     Active Substance: LINEZOLID
     Indication: EXTRADURAL ABSCESS
  2. LINEZOLID. [Suspect]
     Active Substance: LINEZOLID
     Indication: STAPHYLOCOCCAL INFECTION
  3. LINEZOLID. [Suspect]
     Active Substance: LINEZOLID
     Indication: BACTERAEMIA
  4. LINEZOLID. [Suspect]
     Active Substance: LINEZOLID
     Indication: SPONDYLITIS
     Dosage: UNK
     Route: 065
  5. LINEZOLID. [Suspect]
     Active Substance: LINEZOLID
     Indication: POSTOPERATIVE WOUND INFECTION

REACTIONS (1)
  - Lactic acidosis [Recovered/Resolved]
